FAERS Safety Report 5944713-9 (Version None)
Quarter: 2008Q4

REPORT INFORMATION
  Report Type: 
  Country: None (occurrence: None)
  Receive Date: 20081107
  Receipt Date: 20081030
  Transmission Date: 20090506
  Serious: Yes (Hospitalization)
  Sender: FDA-Public Use
  Company Number: FR-AMGEN-US312937

PATIENT
  Sex: Male

DRUGS (2)
  1. ENBREL [Suspect]
     Indication: RHEUMATOID ARTHRITIS
     Dosage: UNKNOWN
     Route: 058
     Dates: start: 20051101, end: 20080414
  2. METHOTREXATE [Suspect]
     Indication: RHEUMATOID ARTHRITIS
     Dosage: UNKNOWN
     Route: 048
     Dates: start: 20051101, end: 20080414

REACTIONS (7)
  - ATELECTASIS [None]
  - CARDIAC NEOPLASM MALIGNANT [None]
  - LYMPHADENOPATHY [None]
  - MALIGNANT NEOPLASM OF PLEURA [None]
  - PLEURAL FIBROSIS [None]
  - RECURRENT CANCER [None]
  - TUBERCULOUS PLEURISY [None]
